FAERS Safety Report 7603153-7 (Version None)
Quarter: 2011Q2

REPORT INFORMATION
  Report Type: 
  Country: None (occurrence: None)
  Receive Date: 20110630
  Receipt Date: 20110622
  Transmission Date: 20111010
  Serious: Yes (Hospitalization)
  Sender: FDA-Public Use
  Company Number: WAES 1106 DEU00032

PATIENT
  Age: 75 Year
  Sex: Male

DRUGS (2)
  1. TRUVADA [Concomitant]
  2. ISENTRESS [Suspect]
     Indication: HIV INFECTION
     Dosage: 400 MG/BID
     Route: 048
     Dates: start: 20101001, end: 20110511

REACTIONS (5)
  - GASTRIC ULCER HAEMORRHAGE [None]
  - HAEMOGLOBIN DECREASED [None]
  - HAEMATOCRIT DECREASED [None]
  - DIZZINESS POSTURAL [None]
  - RED BLOOD CELL COUNT DECREASED [None]
